FAERS Safety Report 25648750 (Version 2)
Quarter: 2025Q3

REPORT INFORMATION
  Report Type: Report from Study
  Country: AR (occurrence: AR)
  Receive Date: 20250806
  Receipt Date: 20250819
  Transmission Date: 20251020
  Serious: Yes (Other)
  Sender: NOVARTIS
  Company Number: AR-002147023-NVSC2024AR222606

PATIENT
  Age: 61 Year
  Sex: Female

DRUGS (14)
  1. KISQALI [Suspect]
     Active Substance: RIBOCICLIB SUCCINATE
     Indication: Breast cancer metastatic
     Route: 048
     Dates: start: 20240719, end: 202410
  2. KISQALI [Suspect]
     Active Substance: RIBOCICLIB SUCCINATE
     Dosage: 3 DOSAGE FORM, DAILY (3 OF 200MG) (600 MG)
     Route: 048
     Dates: end: 20241113
  3. KISQALI [Suspect]
     Active Substance: RIBOCICLIB SUCCINATE
     Dosage: 3 DOSAGE FORM, DAILY (3 OF 200MG)
     Route: 065
     Dates: start: 20241121
  4. KISQALI [Suspect]
     Active Substance: RIBOCICLIB SUCCINATE
     Route: 048
     Dates: start: 202411
  5. LETROZOLE [Suspect]
     Active Substance: LETROZOLE
     Indication: Breast cancer metastatic
     Dosage: 1 DOSAGE FORM, QD (1 OF 2.5MG)
     Route: 048
  6. LOSARTAN [Concomitant]
     Active Substance: LOSARTAN
     Indication: Hypertension
     Dosage: 50, BID
     Route: 065
     Dates: start: 202007
  7. VITAMIN B12 [Concomitant]
     Active Substance: CYANOCOBALAMIN
     Indication: Product used for unknown indication
     Route: 065
  8. ESCITALOPRAM [Concomitant]
     Active Substance: ESCITALOPRAM OXALATE
     Indication: Product used for unknown indication
     Dosage: 10 MG, QD
     Route: 065
  9. ALPRAZOLAM [Concomitant]
     Active Substance: ALPRAZOLAM
     Indication: Product used for unknown indication
     Route: 065
  10. ALPRAZOLAM [Concomitant]
     Active Substance: ALPRAZOLAM
     Route: 065
     Dates: start: 2023
  11. ATORVASTATIN [Concomitant]
     Active Substance: ATORVASTATIN
     Indication: Product used for unknown indication
     Route: 065
  12. ATORVASTATIN [Concomitant]
     Active Substance: ATORVASTATIN
     Route: 065
     Dates: start: 2024
  13. RISPERIDONE [Concomitant]
     Active Substance: RISPERIDONE
     Indication: Product used for unknown indication
     Route: 065
  14. ZOLPIDEM [Concomitant]
     Active Substance: ZOLPIDEM TARTRATE
     Indication: Product used for unknown indication
     Route: 065
     Dates: start: 2023

REACTIONS (6)
  - Platelet count decreased [Recovered/Resolved]
  - Vitreous detachment [Not Recovered/Not Resolved]
  - Maculopathy [Not Recovered/Not Resolved]
  - Cataract [Unknown]
  - Obesity [Not Recovered/Not Resolved]
  - Platelet count abnormal [Recovered/Resolved]

NARRATIVE: CASE EVENT DATE: 20241020
